FAERS Safety Report 24867703 (Version 1)
Quarter: 2025Q1

REPORT INFORMATION
  Report Type: Spontaneous
  Country: US (occurrence: US)
  Receive Date: 20250121
  Receipt Date: 20250121
  Transmission Date: 20250409
  Serious: No
  Sender: ROCHE
  Company Number: US-ROCHE-10000182944

PATIENT
  Age: 66 Year
  Sex: Female

DRUGS (3)
  1. XOLAIR [Suspect]
     Active Substance: OMALIZUMAB
     Indication: Product used for unknown indication
     Route: 065
  2. TYMLOS [Suspect]
     Active Substance: ABALOPARATIDE
     Indication: Senile osteoporosis
     Route: 058
  3. TYMLOS [Suspect]
     Active Substance: ABALOPARATIDE
     Indication: Pathological fracture

REACTIONS (9)
  - Feeling cold [Unknown]
  - Tremor [Unknown]
  - Condition aggravated [Unknown]
  - Skin disorder [Unknown]
  - Pollakiuria [Unknown]
  - Urinary incontinence [Unknown]
  - Dysuria [Unknown]
  - Injection site pain [Unknown]
  - Constipation [Unknown]

NARRATIVE: CASE EVENT DATE: 20241212
